FAERS Safety Report 13400155 (Version 8)
Quarter: 2019Q3

REPORT INFORMATION
  Report Type: Spontaneous
  Country: US (occurrence: US)
  Receive Date: 20170404
  Receipt Date: 20190812
  Transmission Date: 20191004
  Serious: No
  Sender: FDA-Public Use
  Company Number: US-PFIZER INC-2017142716

PATIENT
  Age: 65 Year
  Sex: Female

DRUGS (2)
  1. XELJANZ XR [Suspect]
     Active Substance: TOFACITINIB CITRATE
     Indication: RHEUMATOID ARTHRITIS
     Dosage: 11 MG, UNK
     Dates: start: 20170118, end: 20180716
  2. XELJANZ XR [Suspect]
     Active Substance: TOFACITINIB CITRATE
     Dosage: UNK

REACTIONS (17)
  - Tongue eruption [Unknown]
  - Glossitis [Unknown]
  - Rash pustular [Unknown]
  - Mass [Unknown]
  - Genital rash [Unknown]
  - Headache [Unknown]
  - Swollen tongue [Unknown]
  - Product dose omission [Unknown]
  - Tongue pruritus [Unknown]
  - Pruritus [Unknown]
  - Tongue disorder [Unknown]
  - Decreased immune responsiveness [Unknown]
  - Rash [Unknown]
  - Genital discomfort [Unknown]
  - Skin lesion [Unknown]
  - Oral disorder [Unknown]
  - Condition aggravated [Unknown]

NARRATIVE: CASE EVENT DATE: 20170202
